FAERS Safety Report 5772197-2 (Version None)
Quarter: 2008Q2

REPORT INFORMATION
  Report Type: 
  Country: None (occurrence: None)
  Receive Date: 20080613
  Receipt Date: 20080605
  Transmission Date: 20081010
  Serious: Yes (Other)
  Sender: FDA-Public Use
  Company Number: US-JNJFOC-20080503105

PATIENT
  Sex: Female
  Weight: 65.77 kg

DRUGS (4)
  1. ELMIRON [Suspect]
     Indication: CYSTITIS INTERSTITIAL
     Route: 048
  2. VESICARE [Concomitant]
     Indication: CYSTITIS INTERSTITIAL
     Route: 048
  3. AMITRIPTYLINE HCL [Concomitant]
     Indication: CYSTITIS INTERSTITIAL
     Route: 048
  4. HYDROXYZINE [Concomitant]
     Indication: CYSTITIS INTERSTITIAL
     Route: 048

REACTIONS (2)
  - HEPATIC FIBROSIS [None]
  - HEPATIC STEATOSIS [None]
